FAERS Safety Report 4848529-6 (Version None)
Quarter: 2005Q4

REPORT INFORMATION
  Report Type: 
  Country: None (occurrence: None)
  Receive Date: 20051206
  Receipt Date: 20051122
  Transmission Date: 20060501
  Serious: Yes (Other)
  Sender: FDA-Public Use
  Company Number: 2005127198

PATIENT
  Age: 42 Year
  Sex: Female
  Weight: 64.4108 kg

DRUGS (9)
  1. BENADRYL  ALLERGY SINUS HEADACHE [Suspect]
     Indication: HYPERSENSITIVITY
     Dosage: 1-2 CAPLETS Q G HRS, THEN TWICE WEEKLY, ORAL
     Route: 048
     Dates: start: 20051101, end: 20051101
  2. BENADRYL  ALLERGY SINUS HEADACHE (DIPHENHYDRAMINE, PARACETAMOL, PSEUDO [Suspect]
  3. ZYRTEC [Suspect]
     Indication: NASAL CONGESTION
     Dates: start: 20051101, end: 20051101
  4. 4-WAY NASAL SPRAY (MEPYRAMINE MALEATE, NAPHAZOLINE HYDROCHLORIDE, PHEN [Suspect]
     Indication: HYPERSENSITIVITY
     Dosage: ONE SPRAY PER NOSTRIL, NASAL
     Route: 045
  5. VALPROATE SODIUM [Concomitant]
  6. LAMOTRIGINE [Concomitant]
  7. PHENYTOIN SODIUM [Concomitant]
  8. PARACETAMOL (PARACETAMOL) [Concomitant]
  9. BUPROPION HYDROCHLORIDE [Concomitant]

REACTIONS (11)
  - AMNESIA [None]
  - DRUG INEFFECTIVE [None]
  - DYSPHONIA [None]
  - EPISTAXIS [None]
  - GLOSSODYNIA [None]
  - GRAND MAL CONVULSION [None]
  - HAIR TEXTURE ABNORMAL [None]
  - NASAL CONGESTION [None]
  - REBOUND EFFECT [None]
  - SOMNOLENCE [None]
  - TONGUE BITING [None]
